FAERS Safety Report 7989099-3 (Version None)
Quarter: 2011Q4

REPORT INFORMATION
  Report Type: 
  Country: None (occurrence: None)
  Receive Date: 20111007
  Receipt Date: 20110816
  Transmission Date: 20120403
  Serious: No
  Sender: FDA-Public Use
  Company Number: 2011HGS-002486

PATIENT
  Age: 59 Year
  Sex: Female
  Weight: 97.5234 kg

DRUGS (16)
  1. PREDNISONE [Concomitant]
  2. NAPROSYN [Concomitant]
  3. CRESTOR [Concomitant]
  4. LEVOTHYROXINE SODIUM [Concomitant]
  5. VITAMIN D [Concomitant]
  6. BENLYSTA [Suspect]
     Indication: SYSTEMIC LUPUS ERYTHEMATOSUS
     Dosage: INTRAVENOUS DRIP
     Route: 041
     Dates: start: 20110714
  7. KLOR-CON [Concomitant]
  8. IMURAN [Concomitant]
  9. METOPROLOL TARTRATE [Concomitant]
  10. VIVELLE [Concomitant]
  11. LASIX (LASIX) (FUROSEMIDE, FUROSEMIDE SODIUM) [Concomitant]
  12. OSCAL D (CALCIUM CARBONATE) [Concomitant]
  13. NEXIUM [Concomitant]
  14. LISINOPRIL [Concomitant]
  15. PAROXETINE HCL [Concomitant]
  16. PLAQUENIL [Concomitant]

REACTIONS (3)
  - ARTHRALGIA [None]
  - RASH [None]
  - FATIGUE [None]
